FAERS Safety Report 12266331 (Version 1)
Quarter: 2016Q2

REPORT INFORMATION
  Report Type: Spontaneous
  Country: US (occurrence: US)
  Receive Date: 20160414
  Receipt Date: 20160414
  Transmission Date: 20160815
  Serious: Yes (Other)
  Sender: FDA-Public Use
  Company Number: US-AMGEN-USASP2016045837

PATIENT
  Age: 42 Year
  Sex: Female

DRUGS (2)
  1. ENBREL [Suspect]
     Active Substance: ETANERCEPT
     Indication: PSORIASIS
     Dosage: 25 MG, 2 TIMES/WK
     Route: 065
     Dates: start: 2013
  2. ENBREL [Suspect]
     Active Substance: ETANERCEPT
     Indication: PSORIATIC ARTHROPATHY

REACTIONS (12)
  - Throat cancer [Not Recovered/Not Resolved]
  - Drug dose omission [Unknown]
  - Brain neoplasm [Unknown]
  - Attention deficit/hyperactivity disorder [Unknown]
  - Gait disturbance [Unknown]
  - Erythema [Unknown]
  - Dysphonia [Unknown]
  - Laryngeal polyp [Unknown]
  - Reading disorder [Unknown]
  - Psoriasis [Unknown]
  - Feeling hot [Unknown]
  - Skin mass [Unknown]
